FAERS Safety Report 21380307 (Version 1)
Quarter: 2022Q3

REPORT INFORMATION
  Report Type: Report from Study
  Country: GB (occurrence: GB)
  Receive Date: 20220927
  Receipt Date: 20220927
  Transmission Date: 20221026
  Serious: Yes (Other)
  Sender: FDA-Public Use
  Company Number: GB-ABBVIE-4129599

PATIENT

DRUGS (2)
  1. VENETOCLAX [Suspect]
     Active Substance: VENETOCLAX
     Indication: Product used for unknown indication
     Route: 048
     Dates: end: 202105
  2. NAVITOCLAX [Suspect]
     Active Substance: NAVITOCLAX
     Indication: Product used for unknown indication
     Route: 065
     Dates: end: 202105

REACTIONS (2)
  - Disease progression [Unknown]
  - Cytopenia [Unknown]
